FAERS Safety Report 6168287-5 (Version None)
Quarter: 2009Q2

REPORT INFORMATION
  Report Type: 
  Country: None (occurrence: None)
  Receive Date: 20090424
  Receipt Date: 20090424
  Transmission Date: 20091009
  Serious: No
  Sender: FDA-Public Use
  Company Number: None

PATIENT
  Age: 47 Year
  Sex: Female
  Weight: 80.7403 kg

DRUGS (1)
  1. ACTOS [Suspect]
     Indication: DIABETES MELLITUS
     Dosage: 1 BY MOUTH DAILY PO
     Route: 048
     Dates: start: 20060708, end: 20080909

REACTIONS (2)
  - ARTHRALGIA [None]
  - BONE DISORDER [None]
